FAERS Safety Report 8648947 (Version 2)
Quarter: 2013Q3

REPORT INFORMATION
  Report Type: Report from Study
  Country: CA (occurrence: CA)
  Receive Date: 20120704
  Receipt Date: 20130715
  Transmission Date: 20140515
  Serious: Yes (Other)
  Sender: FDA-Public Use
  Company Number: CA-BRISTOL-MYERS SQUIBB COMPANY-15591183

PATIENT
  Age: 61 Year
  Sex: Male

DRUGS (3)
  1. SAXAGLIPTIN [Suspect]
     Indication: TYPE 2 DIABETES MELLITUS
     Dates: start: 20101021
  2. INHIBACE [Suspect]
  3. ASPIRIN [Concomitant]
     Dosage: 1 DF={ 100 MG

REACTIONS (1)
  - Angioedema [Recovered/Resolved]
